FAERS Safety Report 4837751-0 (Version None)
Quarter: 2005Q4

REPORT INFORMATION
  Report Type: 
  Country: None (occurrence: None)
  Receive Date: 20051128
  Receipt Date: 20051116
  Transmission Date: 20060501
  Serious: Yes (Hospitalization)
  Sender: FDA-Public Use
  Company Number: US-MERCK-0511USA03029

PATIENT
  Age: 76 Year
  Sex: Female
  Weight: 91 kg

DRUGS (14)
  1. VIOXX [Suspect]
     Indication: PAIN IN EXTREMITY
     Route: 048
     Dates: start: 20000913, end: 20031201
  2. VIOXX [Suspect]
     Indication: ARTHRITIS
     Route: 048
     Dates: start: 20000913, end: 20031201
  3. LANTUS [Concomitant]
     Route: 065
  4. ATACAND [Concomitant]
     Route: 065
  5. LASIX [Concomitant]
     Route: 065
  6. POTASSIUM CHLORIDE [Concomitant]
     Route: 065
  7. ASPIRIN [Concomitant]
     Route: 065
  8. HYDROXYZINE HYDROCHLORIDE [Concomitant]
     Route: 065
  9. NEURONTIN [Concomitant]
     Route: 065
  10. FLEXERIL [Concomitant]
     Route: 048
  11. CHLORDIAZEPOXIDE [Concomitant]
     Route: 065
  12. GLUCOSAMINE [Concomitant]
     Route: 065
  13. DIMETHYL SULFONE [Concomitant]
     Route: 065
  14. TURMERIC [Concomitant]
     Route: 065

REACTIONS (30)
  - ABASIA [None]
  - ANAEMIA [None]
  - ATRIOVENTRICULAR BLOCK FIRST DEGREE [None]
  - BLOOD ERYTHROPOIETIN INCREASED [None]
  - BUNDLE BRANCH BLOCK LEFT [None]
  - CARDIAC FAILURE [None]
  - CARDIAC FAILURE CONGESTIVE [None]
  - CARDIOMYOPATHY [None]
  - CEREBRAL INFARCTION [None]
  - CEREBROVASCULAR ACCIDENT [None]
  - DEHYDRATION [None]
  - DERMATOPHYTOSIS [None]
  - DIABETES MELLITUS INADEQUATE CONTROL [None]
  - DIVERTICULUM INTESTINAL [None]
  - DYSPHAGIA [None]
  - EJECTION FRACTION DECREASED [None]
  - GASTROINTESTINAL HAEMORRHAGE [None]
  - GENERALISED OEDEMA [None]
  - GOUT [None]
  - HEPATOTOXICITY [None]
  - HYPERTENSION [None]
  - HYPOTHERMIA [None]
  - IRON DEFICIENCY ANAEMIA [None]
  - LUNG INFILTRATION [None]
  - PEPTIC ULCER [None]
  - PYURIA [None]
  - RENAL FAILURE ACUTE [None]
  - RENAL FAILURE CHRONIC [None]
  - TREATMENT NONCOMPLIANCE [None]
  - URINARY TRACT INFECTION [None]
